FAERS Safety Report 4896213-5 (Version None)
Quarter: 2006Q1

REPORT INFORMATION
  Report Type: 
  Country: None (occurrence: None)
  Receive Date: 20060131
  Receipt Date: 20051108
  Transmission Date: 20060701
  Serious: Yes (Death)
  Sender: FDA-Public Use
  Company Number: FR-SANOFI-SYNTHELABO-A01200507673

PATIENT
  Sex: Female
  Weight: 68 kg

DRUGS (6)
  1. PLAVIX [Suspect]
     Indication: RENAL ARTERY STENT PLACEMENT
     Route: 048
     Dates: start: 20040701, end: 20051031
  2. KARDEGIC [Suspect]
     Indication: RENAL ARTERY STENT PLACEMENT
     Dosage: UNK
     Route: 065
     Dates: start: 20040701, end: 20051026
  3. LOXEN [Concomitant]
     Route: 065
  4. HYPERIUM [Concomitant]
     Indication: DRUG USE FOR UNKNOWN INDICATION
     Route: 065
  5. ALLOPURINOL [Concomitant]
     Indication: DRUG USE FOR UNKNOWN INDICATION
     Route: 065
  6. XANAX [Concomitant]
     Indication: DRUG USE FOR UNKNOWN INDICATION
     Route: 065

REACTIONS (2)
  - DRUG INEFFECTIVE [None]
  - MYOCARDIAL INFARCTION [None]
